FAERS Safety Report 4387690-7 (Version None)
Quarter: 2004Q2

REPORT INFORMATION
  Report Type: 
  Country: None (occurrence: None)
  Receive Date: 20040625
  Receipt Date: 20040611
  Transmission Date: 20050107
  Serious: No
  Sender: FDA-Public Use
  Company Number: EM2004-0306

PATIENT
  Age: 61 Year
  Sex: Female
  Weight: 57 kg

DRUGS (10)
  1. MACROLIN [Suspect]
     Indication: HIV INFECTION
     Dosage: 4.5 MIU, BID, SUBCUTAN.
     Route: 058
     Dates: start: 20030526, end: 20030530
  2. MACROLIN [Suspect]
     Indication: HIV INFECTION
     Dosage: 4.5 MIU, BID, SUBCUTAN.
     Route: 058
     Dates: start: 20030708, end: 20030712
  3. MACROLIN [Suspect]
     Indication: HIV INFECTION
     Dosage: 4.5 MIU, BID, SUBCUTAN.
     Route: 058
     Dates: start: 20030915, end: 20030919
  4. MACROLIN [Suspect]
     Indication: HIV INFECTION
     Dosage: 4.5 MIU, BID, SUBCUTAN.
     Route: 058
     Dates: start: 20031110, end: 20031114
  5. MACROLIN [Suspect]
     Indication: HIV INFECTION
     Dosage: 4.5 MIU, BID, SUBCUTAN.
     Route: 058
     Dates: start: 20040105, end: 20040109
  6. MACROLIN [Suspect]
     Indication: HIV INFECTION
     Dosage: 4.5 MIU, BID, SUBCUTAN.
     Route: 058
     Dates: start: 20040301, end: 20040305
  7. VIREAD [Suspect]
     Indication: HIV INFECTION
     Dosage: 1 TABLET, QD, ORAL
     Route: 048
     Dates: start: 20020924, end: 20040607
  8. BACTRIM [Concomitant]
  9. KALETRA [Concomitant]
  10. EPIVIR [Concomitant]

REACTIONS (1)
  - FANCONI SYNDROME ACQUIRED [None]
